FAERS Safety Report 8552502-4 (Version None)
Quarter: 2012Q3

REPORT INFORMATION
  Report Type: 
  Country: None (occurrence: None)
  Receive Date: 20120731
  Receipt Date: 20120727
  Transmission Date: 20120928
  Serious: Yes (Death, Other)
  Sender: FDA-Public Use
  Company Number: RU-JNJFOC-20120711861

PATIENT

DRUGS (10)
  1. DOXORUBICIN HYDROCHLORIDE [Suspect]
     Indication: HODGKIN'S DISEASE
     Dosage: AS PART OF ABVD OR BEACOPP
     Route: 042
  2. ETOPOSIDE [Suspect]
     Indication: HODGKIN'S DISEASE
     Route: 065
  3. BLEOMYCIN SULFATE [Suspect]
     Indication: HODGKIN'S DISEASE
     Dosage: AS PART OF ABVD OR BEACOPP
     Route: 065
  4. DACARBAZINE [Suspect]
     Indication: HODGKIN'S DISEASE
     Route: 065
  5. CYCLOPHOSPHAMIDE [Suspect]
     Indication: HODGKIN'S DISEASE
     Route: 065
  6. PROCARBAZINE HYDROCHLORIDE [Suspect]
     Indication: HODGKIN'S DISEASE
     Route: 065
  7. PREDNISONE [Suspect]
     Indication: HODGKIN'S DISEASE
     Route: 065
  8. VINBLASTINE SULFATE [Suspect]
     Indication: HODGKIN'S DISEASE
     Route: 065
  9. VINCRISTINE [Suspect]
     Indication: HODGKIN'S DISEASE
     Route: 065
  10. CHEMORADIATION [Suspect]
     Indication: HODGKIN'S DISEASE
     Route: 065

REACTIONS (8)
  - NEOPLASM [None]
  - LEUKOPENIA [None]
  - VOMITING [None]
  - TREATMENT FAILURE [None]
  - NEUTROPENIA [None]
  - ACUTE LEUKAEMIA [None]
  - TOXICITY TO VARIOUS AGENTS [None]
  - FEBRILE NEUTROPENIA [None]
